FAERS Safety Report 21910411 (Version 3)
Quarter: 2023Q4

REPORT INFORMATION
  Report Type: Spontaneous
  Country: US (occurrence: US)
  Receive Date: 20230125
  Receipt Date: 20231108
  Transmission Date: 20240110
  Serious: Yes (Other)
  Sender: FDA-Public Use
  Company Number: US-JNJFOC-20230148017

PATIENT
  Sex: Male

DRUGS (6)
  1. TYLENOL REGULAR STRENGTH [Suspect]
     Active Substance: ACETAMINOPHEN
     Indication: Abdominal discomfort
     Dosage: USED DURING THE SECOND AND THIRD TRIMESTERS OF PREGNANCY.
     Route: 064
     Dates: start: 201702, end: 201711
  2. TYLENOL EXTRA STRENGTH [Suspect]
     Active Substance: ACETAMINOPHEN
     Indication: Abdominal discomfort
     Dosage: USED DURING THE SECOND AND THIRD TRIMESTERS OF PREGNANCY.
     Route: 064
     Dates: start: 201702, end: 201711
  3. ACETAMINOPHEN [Suspect]
     Active Substance: ACETAMINOPHEN
     Indication: Abdominal discomfort
     Dosage: USED DURING THE SECOND AND THIRD TRIMESTERS OF PREGNANCY.
     Route: 064
     Dates: start: 201706, end: 201711
  4. ACETAMINOPHEN [Suspect]
     Active Substance: ACETAMINOPHEN
     Indication: Abdominal discomfort
     Dosage: USED DURING THE FIRST, SECOND AND THIRD TRIMESTERS OF PREGNANCY.
     Route: 064
     Dates: start: 201702, end: 201711
  5. ACETAMINOPHEN [Suspect]
     Active Substance: ACETAMINOPHEN
     Indication: Product used for unknown indication
     Route: 064
     Dates: start: 201702, end: 201711
  6. ACETAMINOPHEN [Suspect]
     Active Substance: ACETAMINOPHEN
     Indication: Product used for unknown indication
     Route: 064
     Dates: start: 201702, end: 201711

REACTIONS (3)
  - Autism spectrum disorder [Unknown]
  - Foetal exposure during pregnancy [Unknown]
  - Attention deficit hyperactivity disorder [Unknown]

NARRATIVE: CASE EVENT DATE: 20170101
